FAERS Safety Report 5097494-8 (Version None)
Quarter: 2006Q3

REPORT INFORMATION
  Report Type: 
  Country: None (occurrence: None)
  Receive Date: 20060901
  Receipt Date: 20060822
  Transmission Date: 20061208
  Serious: Yes (Other)
  Sender: FDA-Public Use
  Company Number: 2006102185

PATIENT
  Age: 59 Year
  Sex: Female
  Weight: 72.5755 kg

DRUGS (4)
  1. ZOLOFT [Suspect]
     Indication: NEURALGIA
     Dosage: 50 MG (50 MG,1 IN 1 D), ORAL   2 MONTHS AGO
     Route: 048
  2. VALSARTAN [Concomitant]
  3. DIAZIDE (GLICLAZIDE) [Concomitant]
  4. ALLOPURINOL [Concomitant]

REACTIONS (2)
  - HEARING IMPAIRED [None]
  - HYPOACUSIS [None]
